FAERS Safety Report 7579652-3 (Version None)
Quarter: 2011Q2

REPORT INFORMATION
  Report Type: 
  Country: None (occurrence: None)
  Receive Date: 20110622
  Receipt Date: 20110610
  Transmission Date: 20111010
  Serious: Yes (Disabling, Other)
  Sender: FDA-Public Use
  Company Number: HA11-138-AE

PATIENT
  Age: 59 Year
  Sex: Female
  Weight: 48 kg

DRUGS (10)
  1. FLUOXETINE HYDROCHLORIDE (GENERIC OF PROZAC) [Concomitant]
  2. NAPROXEN [Suspect]
     Indication: ARTHRITIS
     Dosage: 500MG, 2X/DAY, ORAL
     Route: 048
  3. CELEBREX [Suspect]
     Indication: ARTHRITIS
     Dosage: 200MG DAILY, ORAL
     Route: 048
  4. INSTANT RELEASE TABLETS OF MORPHINE [Concomitant]
  5. IBUPROFEN [Suspect]
     Indication: ARTHRITIS
     Dosage: 200MG, 6 TIMES/DAY, ORAL
     Route: 048
  6. ALPRAZOLAM [Concomitant]
  7. GLUCOSAMINE CHONDROITIN [Suspect]
     Indication: ARTHRITIS
  8. EXTENDED RELEASE TABLETS OF MORPHINE [Concomitant]
  9. LIDODERM [Concomitant]
  10. MULTI-VITAMINS [Concomitant]

REACTIONS (7)
  - SPINAL COLUMN STENOSIS [None]
  - GAIT DISTURBANCE [None]
  - JOINT RANGE OF MOTION DECREASED [None]
  - NECK INJURY [None]
  - DRUG DOSE OMISSION [None]
  - DRUG INEFFECTIVE [None]
  - PAIN IN EXTREMITY [None]
